FAERS Safety Report 17203413 (Version 1)
Quarter: 2019Q4

REPORT INFORMATION
  Report Type: Spontaneous
  Country: US (occurrence: US)
  Receive Date: 20191226
  Receipt Date: 20191226
  Transmission Date: 20200122
  Serious: Yes (Other)
  Sender: FDA-Public Use
  Company Number: US-PFIZER INC-2019553631

PATIENT
  Age: 71 Year
  Sex: Female

DRUGS (1)
  1. VYNDAQEL [Suspect]
     Active Substance: TAFAMIDIS MEGLUMINE
     Indication: AMYLOIDOSIS
     Dosage: 80 MG, UNK

REACTIONS (7)
  - Seizure [Unknown]
  - Gait disturbance [Unknown]
  - Nausea [Unknown]
  - Tremor [Unknown]
  - Memory impairment [Unknown]
  - Off label use [Unknown]
  - Product use in unapproved indication [Unknown]
